FAERS Safety Report 7935833-8 (Version None)
Quarter: 2011Q4

REPORT INFORMATION
  Report Type: 
  Country: None (occurrence: None)
  Receive Date: 20111121
  Receipt Date: 20111107
  Transmission Date: 20120403
  Serious: Yes (Other)
  Sender: FDA-Public Use
  Company Number: LOC-00883

PATIENT
  Age: 17 Year
  Sex: Female

DRUGS (2)
  1. PYOSTACINE (PRISTINAMYCIN) [Suspect]
     Indication: PRURITUS
     Dosage: 500 MG, /D, TRANSPLACENTAL
     Route: 064
     Dates: start: 20101101, end: 20101101
  2. LOCOID [Suspect]
     Indication: PRURITUS
     Dosage: TOPICAL
     Route: 061
     Dates: start: 20101101, end: 20101101

REACTIONS (1)
  - MATERNAL EXPOSURE DURING PREGNANCY [None]
